FAERS Safety Report 8597818-0 (Version None)
Quarter: 2012Q3

REPORT INFORMATION
  Report Type: 
  Country: None (occurrence: None)
  Receive Date: 20120816
  Receipt Date: 20120808
  Transmission Date: 20120928
  Serious: Yes (Life-Threatening)
  Sender: FDA-Public Use
  Company Number: US-BAYER-2012-082081

PATIENT

DRUGS (1)
  1. ALEVE (CAPLET) [Suspect]
     Dosage: TOOK 7 ALEVE'S
     Route: 048

REACTIONS (2)
  - APPARENT DEATH [None]
  - DIZZINESS [None]
